FAERS Safety Report 5837648-3 (Version None)
Quarter: 2008Q3

REPORT INFORMATION
  Report Type: 
  Country: None (occurrence: None)
  Receive Date: 20080807
  Receipt Date: 20080804
  Transmission Date: 20090109
  Serious: Yes (Hospitalization)
  Sender: FDA-Public Use
  Company Number: PHEH2008US06859

PATIENT
  Sex: Female

DRUGS (2)
  1. RECLAST [Suspect]
  2. CALCIUM [Suspect]
     Dosage: OVERDOSE

REACTIONS (3)
  - DEHYDRATION [None]
  - OVERDOSE [None]
  - RENAL FAILURE [None]
